FAERS Safety Report 18854496 (Version 2)
Quarter: 2022Q3

REPORT INFORMATION
  Report Type: Report from Study
  Country: CA (occurrence: CA)
  Receive Date: 20210205
  Receipt Date: 20220712
  Transmission Date: 20221027
  Serious: Yes (Other)
  Sender: FDA-Public Use
  Company Number: CA-GLAXOSMITHKLINE-CA2021AMR022663

PATIENT

DRUGS (8)
  1. ALBUTEROL SULFATE [Suspect]
     Active Substance: ALBUTEROL SULFATE
     Indication: Product used for unknown indication
     Dosage: UNK UNK,
  2. ADVAIR HFA [Suspect]
     Active Substance: FLUTICASONE PROPIONATE\SALMETEROL XINAFOATE
     Indication: Asthma
     Dosage: 2 PUFF(S), BID (250/20 MCG)
     Route: 055
  3. SINGULAIR [Suspect]
     Active Substance: MONTELUKAST SODIUM
     Indication: Product used for unknown indication
     Dosage: 10 MG, QD
  4. QVAR [Suspect]
     Active Substance: BECLOMETHASONE DIPROPIONATE
     Indication: Product used for unknown indication
     Dosage: 1 PUFF(S), BID (100 MCG)
  5. XOLAIR [Suspect]
     Active Substance: OMALIZUMAB
     Indication: Product used for unknown indication
     Dosage: UNK
     Dates: end: 20210120
  6. PREDNISONE [Suspect]
     Active Substance: PREDNISONE
     Indication: Product used for unknown indication
     Dosage: UNK( 5 DAYS/ MONTH)
     Dates: start: 202002
  7. PREDNISONE [Suspect]
     Active Substance: PREDNISONE
     Dosage: UNK ( 5 DAYS/ MONTH)
     Dates: start: 202101
  8. SPIRIVA RESPIMAT [Suspect]
     Active Substance: TIOTROPIUM BROMIDE
     Indication: Product used for unknown indication
     Dosage: 2 PUFF(S), QD

REACTIONS (12)
  - Asthma [Unknown]
  - Obstructive airways disorder [Unknown]
  - Wheezing [Unknown]
  - Dyspnoea [Unknown]
  - Cough [Unknown]
  - Perfume sensitivity [Unknown]
  - Throat clearing [Unknown]
  - Chest discomfort [Unknown]
  - Discomfort [Unknown]
  - Sleep disorder due to a general medical condition [Unknown]
  - Loss of personal independence in daily activities [Unknown]
  - Drug ineffective [Unknown]
